FAERS Safety Report 7635469-2 (Version None)
Quarter: 2011Q3

REPORT INFORMATION
  Report Type: 
  Country: None (occurrence: None)
  Receive Date: 20110726
  Receipt Date: 20110726
  Transmission Date: 20111222
  Serious: Yes (Hospitalization)
  Sender: FDA-Public Use
  Company Number: None

PATIENT
  Age: 63 Year
  Sex: Male
  Weight: 83.007 kg

DRUGS (1)
  1. CUBICIN [Suspect]
     Indication: INFECTION
     Dosage: 500 MG
     Route: 041
     Dates: start: 20110629, end: 20110719

REACTIONS (4)
  - BODY TEMPERATURE INCREASED [None]
  - ACUTE RESPIRATORY FAILURE [None]
  - PNEUMONIA [None]
  - PULMONARY CONGESTION [None]
